FAERS Safety Report 5734780-X (Version None)
Quarter: 2008Q2

REPORT INFORMATION
  Report Type: 
  Country: None (occurrence: None)
  Receive Date: 20080512
  Receipt Date: 20080507
  Transmission Date: 20081010
  Serious: Yes (Other)
  Sender: FDA-Public Use
  Company Number: PHNU2008DE01747

PATIENT
  Sex: Male

DRUGS (2)
  1. CITALOPRAM HYDROBROMIDE [Concomitant]
     Route: 048
  2. CLOZAPINE [Suspect]
     Dosage: 100 MG/DAY
     Route: 048

REACTIONS (3)
  - DIABETES INSIPIDUS [None]
  - POLYDIPSIA [None]
  - POLYURIA [None]
